FAERS Safety Report 8520779 (Version 4)
Quarter: 2013Q4

REPORT INFORMATION
  Report Type: Spontaneous
  Country: US (occurrence: US)
  Receive Date: 20120418
  Receipt Date: 20131115
  Transmission Date: 20140711
  Serious: No
  Sender: FDA-Public Use
  Company Number: US-ASTRAZENECA-2012SE08612

PATIENT
  Age: 84 Year
  Sex: Male
  Weight: 81.6 kg

DRUGS (7)
  1. NEXIUM [Suspect]
     Route: 048
  2. TOPROL XL [Suspect]
     Indication: CARDIAC DISORDER
     Route: 048
  3. TOPROL XL [Suspect]
     Indication: BLOOD PRESSURE
     Route: 048
  4. TWENTY FIVE PILLS [Suspect]
     Route: 065
  5. NAMENDA [Concomitant]
     Indication: DEMENTIA ALZHEIMER^S TYPE
  6. DICYCLOMINE [Concomitant]
     Indication: ABDOMINAL DISCOMFORT
  7. OTHERS (UNSPECIFIED) [Concomitant]

REACTIONS (4)
  - Cough [Unknown]
  - Gastrointestinal disorder [Unknown]
  - Vomiting [Unknown]
  - Confusional state [Unknown]
